APPROVED DRUG PRODUCT: TACROLIMUS
Active Ingredient: TACROLIMUS
Strength: 0.1%
Dosage Form/Route: OINTMENT;TOPICAL
Application: A200744 | Product #002 | TE Code: AB
Applicant: FOUGERA PHARMACEUTICALS INC
Approved: Sep 9, 2014 | RLD: No | RS: No | Type: RX